FAERS Safety Report 6569309-X (Version None)
Quarter: 2010Q1

REPORT INFORMATION
  Report Type: 
  Country: None (occurrence: None)
  Receive Date: 20100129
  Receipt Date: 20100119
  Transmission Date: 20100710
  Serious: Yes (Hospitalization)
  Sender: FDA-Public Use
  Company Number: CIP10000128

PATIENT
  Age: 71 Year
  Sex: Female

DRUGS (4)
  1. ACTONEL [Suspect]
     Indication: OSTEOPOROSIS
     Dosage: 35 MG ONCE WEEKLY, ORAL
     Route: 048
     Dates: end: 20100113
  2. PROSOM (ESTAZOLAM) [Concomitant]
  3. DICYCLOMINE /00068601/ (DICYCLOVERINE) [Concomitant]
  4. PRED FORTE [Concomitant]

REACTIONS (11)
  - ABDOMINAL PAIN UPPER [None]
  - BLISTER [None]
  - CONDITION AGGRAVATED [None]
  - DIVERTICULITIS [None]
  - GASTROINTESTINAL INFLAMMATION [None]
  - LYMPHADENOPATHY [None]
  - OEDEMA PERIPHERAL [None]
  - OESOPHAGEAL DISCOMFORT [None]
  - OESOPHAGEAL MASS [None]
  - PHOTOPHOBIA [None]
  - WEIGHT DECREASED [None]
